FAERS Safety Report 7623674-0 (Version None)
Quarter: 2011Q3

REPORT INFORMATION
  Report Type: 
  Country: None (occurrence: None)
  Receive Date: 20110720
  Receipt Date: 20110714
  Transmission Date: 20111222
  Serious: Yes (Hospitalization)
  Sender: FDA-Public Use
  Company Number: US-B.I. PHARMACEUTICALS,INC./RIDGEFIELD-2011-BP-13149BP

PATIENT
  Age: 67 Year
  Sex: Female

DRUGS (5)
  1. MULTAQ [Concomitant]
     Indication: ATRIAL FIBRILLATION
  2. VALIUM [Concomitant]
     Indication: NERVOUS SYSTEM DISORDER
     Dosage: 5 MG
  3. ZANTAC [Concomitant]
  4. PRADAXA [Suspect]
     Indication: ATRIAL FIBRILLATION
     Dosage: 300 MG
     Route: 048
     Dates: start: 20101101
  5. DIOVAN [Concomitant]
     Indication: HYPERTENSION

REACTIONS (9)
  - PAIN [None]
  - APHAGIA [None]
  - DYSPEPSIA [None]
  - ABDOMINAL PAIN UPPER [None]
  - INSOMNIA [None]
  - GASTRITIS [None]
  - DUODENITIS [None]
  - HEADACHE [None]
  - HEPATOBILIARY SCAN ABNORMAL [None]
